FAERS Safety Report 8583241-1 (Version None)
Quarter: 2012Q3

REPORT INFORMATION
  Report Type: 
  Country: None (occurrence: None)
  Receive Date: 20120727
  Receipt Date: 20120713
  Transmission Date: 20120928
  Serious: Yes (Hospitalization)
  Sender: FDA-Public Use
  Company Number: 2012FR0185

PATIENT
  Age: 22 Year
  Sex: Female

DRUGS (9)
  1. ATARAX [Concomitant]
  2. FORLAX (MACROGOL 4000 (A DERIVATIVE OF MACROGOL)0 [Concomitant]
  3. PREDNISONE TAB [Concomitant]
  4. PREDNISOLONE [Concomitant]
  5. POLARAMINE [Concomitant]
  6. KINERET [Suspect]
     Indication: STILL'S DISEASE ADULT ONSET
     Dosage: 100 MG (100 MG, 1 IN 1 D), SUBCUTANEOUS
     Route: 058
     Dates: start: 20111226, end: 20120127
  7. TRAMADOL HCL [Concomitant]
  8. POTASSIUM CHLORIDE [Concomitant]
  9. FOLIC ACID [Concomitant]

REACTIONS (1)
  - CYTOLYTIC HEPATITIS [None]
